FAERS Safety Report 5256435-0 (Version None)
Quarter: 2007Q1

REPORT INFORMATION
  Report Type: 
  Country: None (occurrence: None)
  Receive Date: 20070306
  Receipt Date: 20070222
  Transmission Date: 20070707
  Serious: Yes (Death, Hospitalization)
  Sender: FDA-Public Use
  Company Number: PL-PURDUE-DEU_2007_0003017

PATIENT
  Age: 82 Year
  Sex: Female

DRUGS (4)
  1. MST CONTINUS 60 MG [Suspect]
     Indication: CANCER PAIN
     Dosage: 60 MG, Q12H
     Route: 048
     Dates: start: 20070215, end: 20070216
  2. PERINDOPRIL ERBUMINE [Concomitant]
  3. ISOSORBIDE MONONITRATE [Concomitant]
  4. INSULIN [Concomitant]

REACTIONS (3)
  - CARDIOVASCULAR INSUFFICIENCY [None]
  - RESPIRATORY DEPRESSION [None]
  - RESPIRATORY FAILURE [None]
